FAERS Safety Report 5445701-1 (Version None)
Quarter: 2007Q3

REPORT INFORMATION
  Report Type: 
  Country: None (occurrence: None)
  Receive Date: 20070904
  Receipt Date: 20070823
  Transmission Date: 20080115
  Serious: Yes (Hospitalization, Other)
  Sender: FDA-Public Use
  Company Number: 236976K07USA

PATIENT
  Age: 46 Year
  Sex: Female

DRUGS (2)
  1. REBIF [Suspect]
     Indication: MULTIPLE SCLEROSIS
     Dosage: 44 MCG, 3 IN 1 WEEKS, SUBCUTANEOUS; 8.8 MCG, 3 IN 1 DAYS, SUBCUTANEOUS
     Route: 058
     Dates: start: 20070214, end: 20070319
  2. REBIF [Suspect]
     Indication: MULTIPLE SCLEROSIS
     Dosage: 44 MCG, 3 IN 1 WEEKS, SUBCUTANEOUS; 8.8 MCG, 3 IN 1 DAYS, SUBCUTANEOUS
     Route: 058
     Dates: start: 20070820

REACTIONS (8)
  - CONDITION AGGRAVATED [None]
  - CROHN'S DISEASE [None]
  - GASTROINTESTINAL STOMA COMPLICATION [None]
  - INTESTINAL FISTULA [None]
  - INTESTINAL OBSTRUCTION [None]
  - MULTIPLE SCLEROSIS [None]
  - POST PROCEDURAL COMPLICATION [None]
  - WOUND DEHISCENCE [None]
